FAERS Safety Report 8334442-9 (Version None)
Quarter: 2012Q2

REPORT INFORMATION
  Report Type: 
  Country: None (occurrence: None)
  Receive Date: 20120503
  Receipt Date: 20120430
  Transmission Date: 20120825
  Serious: No
  Sender: FDA-Public Use
  Company Number: US-BAYER-2012-042991

PATIENT
  Age: 48 Year
  Sex: Male
  Weight: 77.098 kg

DRUGS (3)
  1. ULTRAVIST 150 [Suspect]
     Indication: COMPUTERISED TOMOGRAM
  2. ULTRAVIST 150 [Suspect]
     Indication: CHOLEDOCHAL CYST
     Dosage: 95 CC @ 2 CC/SEC
     Route: 042
     Dates: start: 20120425, end: 20120425
  3. CONTRAST MEDIA [Concomitant]

REACTIONS (1)
  - URTICARIA [None]
